FAERS Safety Report 10476060 (Version 1)
Quarter: 2014Q3

REPORT INFORMATION
  Report Type: Spontaneous
  Country: DK (occurrence: CA)
  Receive Date: 20140925
  Receipt Date: 20140925
  Transmission Date: 20150326
  Serious: Yes (Other)
  Sender: FDA-Public Use
  Company Number: CA-FRI-1000070930

PATIENT
  Sex: Female

DRUGS (5)
  1. CRESTOR [Suspect]
     Active Substance: ROSUVASTATIN CALCIUM
  2. ESCITALOPRAM [Suspect]
     Active Substance: ESCITALOPRAM OXALATE
     Indication: HOT FLUSH
     Dosage: 5 MG DAILY; DISCONTINUED ABOUT A YEAR AGO (NOS)
     Route: 048
  3. METFORMIN [Concomitant]
     Active Substance: METFORMIN HYDROCHLORIDE
     Dosage: DAILY DOSE NOT REPORTED.
  4. ROSUVASTATIN [Concomitant]
     Active Substance: ROSUVASTATIN
  5. ESCITALOPRAM [Suspect]
     Active Substance: ESCITALOPRAM OXALATE
     Indication: HOT FLUSH
     Dosage: 5 MG DAILY; STARTED 4 YEARS AGO (NOS)
     Route: 048

REACTIONS (2)
  - Off label use [Recovered/Resolved]
  - Gastric ulcer [Recovered/Resolved]
